FAERS Safety Report 6611715-9 (Version None)
Quarter: 2010Q1

REPORT INFORMATION
  Report Type: 
  Country: None (occurrence: None)
  Receive Date: 20100303
  Receipt Date: 20100223
  Transmission Date: 20100710
  Serious: Yes (Hospitalization)
  Sender: FDA-Public Use
  Company Number: GR-ASTRAZENECA-2010SE08534

PATIENT
  Age: 50 Year
  Sex: Male

DRUGS (5)
  1. SEROQUEL XR [Suspect]
     Indication: BIPOLAR DISORDER
     Route: 048
  2. RISPELEN [Concomitant]
     Indication: BIPOLAR DISORDER
     Route: 048
  3. STEDON [Concomitant]
     Indication: BIPOLAR DISORDER
     Route: 048
  4. DISIPAL [Concomitant]
     Indication: BIPOLAR DISORDER
     Route: 048
  5. LYRICA [Concomitant]
     Indication: BIPOLAR DISORDER
     Route: 048

REACTIONS (1)
  - SUBILEUS [None]
